FAERS Safety Report 11502050 (Version 3)
Quarter: 2016Q1

REPORT INFORMATION
  Report Type: Spontaneous
  Country: JP (occurrence: JP)
  Receive Date: 20150914
  Receipt Date: 20160122
  Transmission Date: 20160525
  Serious: Yes (Death)
  Sender: FDA-Public Use
  Company Number: JP-TEVA-591913ISR

PATIENT
  Age: 61 Year
  Sex: Male
  Weight: 55 kg

DRUGS (19)
  1. E-FEN BUCCAL [Suspect]
     Active Substance: FENTANYL CITRATE
     Dosage: DAILY DOSE: 400-1000 MICROGRAM
     Route: 002
     Dates: start: 20150627, end: 20150630
  2. ALDACTONE A [Concomitant]
     Active Substance: SPIRONOLACTONE
     Indication: OEDEMA
     Dosage: 25 MILLIGRAM DAILY;
     Route: 048
     Dates: start: 20150724, end: 20150805
  3. FENTANYL. [Concomitant]
     Active Substance: FENTANYL
     Dosage: 4.2 MILLIGRAM DAILY;
     Route: 062
     Dates: start: 20150627, end: 20150705
  4. FUROSEMIDE. [Concomitant]
     Active Substance: FUROSEMIDE
     Indication: OEDEMA
     Dosage: 20 MILLIGRAM DAILY;
     Route: 048
     Dates: start: 20150724, end: 20150805
  5. E-FEN BUCCAL [Suspect]
     Active Substance: FENTANYL CITRATE
     Dosage: DAILY DOSE: 400-800 MICROGRAM
     Route: 002
     Dates: start: 20150701, end: 20150711
  6. E-FEN BUCCAL [Suspect]
     Active Substance: FENTANYL CITRATE
     Dosage: 400 MICROGRAM DAILY;
     Route: 002
     Dates: start: 20150711, end: 20150806
  7. LANSOPRAZOLE OD [Concomitant]
     Active Substance: LANSOPRAZOLE
     Indication: DUODENAL ULCER
     Dosage: 15 MILLIGRAM DAILY;
     Route: 048
     Dates: end: 20150805
  8. OXINORM [Concomitant]
     Active Substance: OXYCODONE HYDROCHLORIDE
     Indication: BREAKTHROUGH PAIN
     Route: 048
     Dates: start: 20150507
  9. CELECOX [Concomitant]
     Active Substance: CELECOXIB
     Route: 048
     Dates: end: 20150805
  10. FERROMIA [Concomitant]
     Active Substance: FERROUS CITRATE
     Indication: IRON DEFICIENCY ANAEMIA
     Dosage: 100 MILLIGRAM DAILY;
     Route: 048
     Dates: end: 20150805
  11. CELECOX [Concomitant]
     Active Substance: CELECOXIB
     Indication: CANCER PAIN
     Dosage: 400 MILLIGRAM DAILY;
     Route: 048
     Dates: start: 20150703, end: 20150805
  12. FENTANYL. [Concomitant]
     Active Substance: FENTANYL
     Indication: CANCER PAIN
     Route: 062
     Dates: start: 20150624
  13. ZYPREXA [Concomitant]
     Active Substance: OLANZAPINE
     Indication: NAUSEA
     Dosage: 2.5 MILLIGRAM DAILY;
     Route: 048
     Dates: start: 20150626, end: 20150805
  14. BETAMETHASONE. [Concomitant]
     Active Substance: BETAMETHASONE
     Indication: IRON DEFICIENCY ANAEMIA
     Dosage: 2 MILLIGRAM DAILY;
     Route: 048
     Dates: start: 20150707, end: 20150805
  15. FENTANYL. [Concomitant]
     Active Substance: FENTANYL
     Dosage: 6.3 MILLIGRAM DAILY;
     Route: 062
     Dates: start: 20150706, end: 20150807
  16. CALONAL [Concomitant]
     Active Substance: ACETAMINOPHEN
     Indication: CANCER PAIN
     Route: 048
     Dates: end: 20150804
  17. E-FEN BUCCAL [Suspect]
     Active Substance: FENTANYL CITRATE
     Dosage: DAILY DOSE: 100-200 MICROGRAM
     Route: 002
     Dates: start: 20150625, end: 20150627
  18. SENNOSIDE [Concomitant]
     Active Substance: SENNOSIDES
     Indication: CONSTIPATION
     Dosage: 24 MILLIGRAM DAILY;
     Route: 048
     Dates: start: 20150628, end: 20150628
  19. E-FEN BUCCAL [Suspect]
     Active Substance: FENTANYL CITRATE
     Indication: BREAKTHROUGH PAIN
     Dosage: 100 MICROGRAM DAILY;
     Route: 002
     Dates: start: 20150624, end: 20150624

REACTIONS (6)
  - Constipation [Recovered/Resolved]
  - Oedema [Not Recovered/Not Resolved]
  - Nausea [Recovering/Resolving]
  - Somnolence [Recovered/Resolved]
  - Malaise [Not Recovered/Not Resolved]
  - Gastric cancer [Fatal]

NARRATIVE: CASE EVENT DATE: 20150626
